FAERS Safety Report 21616375 (Version 1)
Quarter: 2022Q4

REPORT INFORMATION
  Report Type: Spontaneous
  Country: US (occurrence: None)
  Receive Date: 20221117
  Receipt Date: 20221117
  Transmission Date: 20230112
  Serious: No
  Sender: FDA-Public Use
  Company Number: None

PATIENT
  Age: 66 Year
  Sex: Female

DRUGS (1)
  1. TACROLIMUS [Suspect]
     Active Substance: TACROLIMUS
     Indication: Lung transplant
     Dosage: OTHER QUANTITY : 4.5MGAM; 5MGPM;?FREQUENCY : TWICE A DAY;?
     Route: 048
     Dates: start: 20220624

REACTIONS (1)
  - Alopecia [None]
